FAERS Safety Report 11717895 (Version 1)
Quarter: 2015Q4

REPORT INFORMATION
  Report Type: Spontaneous
  Country: None (occurrence: None)
  Receive Date: 20151109
  Receipt Date: 20151109
  Transmission Date: 20160304
  Serious: Yes (Other)
  Sender: FDA-Public Use
  Company Number: None

PATIENT
  Age: 41 Year
  Sex: Female
  Weight: 136.08 kg

DRUGS (18)
  1. ALEVE [Concomitant]
     Active Substance: NAPROXEN SODIUM
  2. UNISOM SLEEPTABS [Concomitant]
     Active Substance: DOXYLAMINE SUCCINATE
  3. GABAPENTIN. [Concomitant]
     Active Substance: GABAPENTIN
  4. MIRTAZAPINE. [Concomitant]
     Active Substance: MIRTAZAPINE
  5. VITAMIN B12 [Concomitant]
     Active Substance: CYANOCOBALAMIN
  6. DIPHENHYDRAMINE. [Concomitant]
     Active Substance: DIPHENHYDRAMINE
  7. ACETAMINOPHEN. [Suspect]
     Active Substance: ACETAMINOPHEN
     Indication: TENDONITIS
     Route: 048
     Dates: start: 20151030, end: 20151105
  8. PRAZOSIN [Concomitant]
     Active Substance: PRAZOSIN
  9. BUPROPION SR [Concomitant]
     Active Substance: BUPROPION
  10. PROPRANOLOL [Concomitant]
     Active Substance: PROPRANOLOL\PROPRANOLOL HYDROCHLORIDE
  11. MELOXICAM. [Suspect]
     Active Substance: MELOXICAM
     Indication: ARTHRALGIA
     Route: 048
     Dates: start: 20151030, end: 20151105
  12. MELOXICAM. [Suspect]
     Active Substance: MELOXICAM
     Indication: TENDONITIS
     Route: 048
     Dates: start: 20151030, end: 20151105
  13. ADDERRAL XR [Concomitant]
  14. ASPERCREME NOS [Concomitant]
     Active Substance: MENTHOL\TROLAMINE SALICYLATE
  15. ACETAMINOPHEN. [Suspect]
     Active Substance: ACETAMINOPHEN
     Indication: ARTHRALGIA
     Route: 048
     Dates: start: 20151030, end: 20151105
  16. ALDACTONE [Concomitant]
     Active Substance: SPIRONOLACTONE
  17. VITAMIN D3 [Concomitant]
     Active Substance: CHOLECALCIFEROL
  18. MELATONIN [Concomitant]
     Active Substance: MELATONIN

REACTIONS (24)
  - Tremor [None]
  - Muscle spasms [None]
  - Dysgeusia [None]
  - Depression [None]
  - Nausea [None]
  - Hyperhidrosis [None]
  - Agoraphobia [None]
  - Anger [None]
  - Visual impairment [None]
  - Back pain [None]
  - Pain [None]
  - Sleep disorder [None]
  - Abnormal dreams [None]
  - Gastrooesophageal reflux disease [None]
  - Somnolence [None]
  - Insomnia [None]
  - Confusional state [None]
  - Parosmia [None]
  - Arthralgia [None]
  - Anxiety [None]
  - Palpitations [None]
  - Diarrhoea [None]
  - Dizziness [None]
  - Vomiting [None]

NARRATIVE: CASE EVENT DATE: 20151106
